FAERS Safety Report 7706842-9 (Version None)
Quarter: 2011Q3

REPORT INFORMATION
  Report Type: 
  Country: None (occurrence: None)
  Receive Date: 20110824
  Receipt Date: 20110810
  Transmission Date: 20111222
  Serious: Yes (Hospitalization)
  Sender: FDA-Public Use
  Company Number: US-GLAXOSMITHKLINE-A0834433A

PATIENT
  Age: 69 Year
  Sex: Male
  Weight: 127.3 kg

DRUGS (2)
  1. NORVASC [Concomitant]
  2. AVANDIA [Suspect]
     Indication: DIABETES MELLITUS
     Dosage: 4MG PER DAY
     Route: 048
     Dates: start: 20020527, end: 20060101

REACTIONS (4)
  - CORONARY ARTERY OCCLUSION [None]
  - TRANSIENT ISCHAEMIC ATTACK [None]
  - CARDIAC DISORDER [None]
  - RETINAL ARTERY OCCLUSION [None]
